FAERS Safety Report 6265683-2 (Version None)
Quarter: 2009Q3

REPORT INFORMATION
  Report Type: 
  Country: None (occurrence: None)
  Receive Date: 20090713
  Receipt Date: 20090702
  Transmission Date: 20100115
  Serious: Yes (Hospitalization)
  Sender: FDA-Public Use
  Company Number: ES-PFIZER INC-2009204219

PATIENT
  Age: 56 Year

DRUGS (4)
  1. ALDACTONE [Suspect]
     Dosage: 50 MG, 1X/DAY
     Route: 048
     Dates: start: 20080222, end: 20080307
  2. RISPERDAL [Interacting]
     Dosage: 1 MG, UNK
     Route: 048
     Dates: start: 20080101, end: 20080307
  3. SEGURIL [Interacting]
     Dosage: 60 MG, WEEKLY
     Route: 048
     Dates: start: 20080222, end: 20080307
  4. CIPRALEX [Concomitant]
     Dosage: 10 MG, UNK
     Route: 048
     Dates: end: 20080307

REACTIONS (2)
  - DRUG INTERACTION [None]
  - HEPATIC ENCEPHALOPATHY [None]
